FAERS Safety Report 19154672 (Version 1)
Quarter: 2021Q2

REPORT INFORMATION
  Report Type: Spontaneous
  Country: IN (occurrence: IN)
  Receive Date: 20210419
  Receipt Date: 20210419
  Transmission Date: 20210717
  Serious: Yes (Death)
  Sender: FDA-Public Use
  Company Number: IN-PFIZER INC-2019432423

PATIENT
  Age: 56 Year
  Sex: Female
  Weight: 53 kg

DRUGS (3)
  1. DENOSUMAB [Concomitant]
     Active Substance: DENOSUMAB
     Dosage: 120 MG, UNK
     Route: 058
  2. PALBACE [Suspect]
     Active Substance: PALBOCICLIB
     Indication: BREAST CANCER METASTATIC
     Dosage: 125 MG, CYCLIC (ONCE DAILY, 21 DAYS ON AND 1 WEEK OFF)
     Route: 048
     Dates: start: 20181214, end: 20210330
  3. LETROZOLE. [Concomitant]
     Active Substance: LETROZOLE
     Dosage: UNK

REACTIONS (8)
  - Blood thyroid stimulating hormone increased [Unknown]
  - Death [Fatal]
  - Vomiting [Not Recovered/Not Resolved]
  - Neck pain [Not Recovered/Not Resolved]
  - Back pain [Not Recovered/Not Resolved]
  - Neutrophil count decreased [Unknown]
  - Total lung capacity decreased [Unknown]
  - Nausea [Not Recovered/Not Resolved]
